FAERS Safety Report 5053376-9 (Version None)
Quarter: 2006Q3

REPORT INFORMATION
  Report Type: 
  Country: None (occurrence: None)
  Receive Date: 20060712
  Receipt Date: 20060706
  Transmission Date: 20061208
  Serious: Yes (Hospitalization)
  Sender: FDA-Public Use
  Company Number: IE-2006-018087

PATIENT
  Age: 40 Year
  Sex: Female
  Weight: 66 kg

DRUGS (1)
  1. MIRENA [Suspect]
     Indication: CONTRACEPTION
     Dosage: 20 UG/DAY, CONT, INTRA-UTERINE
     Route: 015
     Dates: start: 20060530, end: 20060626

REACTIONS (5)
  - ABDOMINAL PAIN LOWER [None]
  - BETA HAEMOLYTIC STREPTOCOCCAL INFECTION [None]
  - MALAISE [None]
  - PYREXIA [None]
  - STREPTOCOCCAL INFECTION [None]
